FAERS Safety Report 7341546-6 (Version None)
Quarter: 2011Q1

REPORT INFORMATION
  Report Type: 
  Country: None (occurrence: None)
  Receive Date: 20110309
  Receipt Date: 20110223
  Transmission Date: 20110831
  Serious: Yes (Hospitalization, Other)
  Sender: FDA-Public Use
  Company Number: US-BAYER-2011-021170

PATIENT
  Sex: Female
  Weight: 71.655 kg

DRUGS (12)
  1. PEPTO BISMOL [Concomitant]
     Indication: ABDOMINAL PAIN
     Dosage: UNK UNK, QD
     Dates: start: 20081001
  2. YASMIN [Suspect]
     Indication: CONTRACEPTION
     Dosage: UNK
     Dates: start: 20051201, end: 20080901
  3. ZOFRAN [Concomitant]
     Indication: BILIARY POLYP
     Dosage: UNK
     Dates: start: 20081019
  4. ZOFRAN [Concomitant]
     Indication: BILIARY COLIC
  5. BENTYL [Concomitant]
     Indication: BILIARY POLYP
  6. LORTAB [Concomitant]
     Indication: BILIARY COLIC
     Dosage: UNK
     Dates: start: 20081019
  7. PROBIOTICA [Concomitant]
     Indication: ABDOMINAL PAIN
     Dosage: UNK UNK, QD
     Dates: start: 20081001
  8. MILK OF MAGNESIA TAB [Concomitant]
  9. DICYCLOMINE [Concomitant]
  10. HYDROCODONE BITARTRATE [Concomitant]
     Dosage: UNK UNK, PRN
  11. LORTAB [Concomitant]
     Indication: BILIARY POLYP
  12. BENTYL [Concomitant]
     Indication: BILIARY COLIC
     Dosage: UNK
     Dates: start: 20081019

REACTIONS (7)
  - ANXIETY [None]
  - ABDOMINAL PAIN [None]
  - ABDOMINAL DISTENSION [None]
  - CHOLELITHIASIS [None]
  - NAUSEA [None]
  - CHOLECYSTITIS [None]
  - GALLBLADDER POLYP [None]
